FAERS Safety Report 26168205 (Version 1)
Quarter: 2025Q4

REPORT INFORMATION
  Report Type: Spontaneous
  Country: EU (occurrence: EU)
  Receive Date: 20251217
  Receipt Date: 20251217
  Transmission Date: 20260118
  Serious: Yes (Death)
  Sender: ACCORD
  Company Number: None

PATIENT
  Age: 64 Year
  Sex: Male

DRUGS (7)
  1. ATORVASTATIN [Suspect]
     Active Substance: ATORVASTATIN
     Indication: Lipids increased
     Dosage: 1X1
     Dates: start: 20230125, end: 20251024
  2. TEGRETOL XR [Concomitant]
     Active Substance: CARBAMAZEPINE
  3. HUMULIN NOS [Concomitant]
     Active Substance: INSULIN HUMAN
  4. FOLIC ACID VITABALANS [Concomitant]
  5. MELATONIN [Concomitant]
     Active Substance: MELATONIN
  6. METFORMIN [Concomitant]
     Active Substance: METFORMIN HYDROCHLORIDE
  7. HERBALS\PLANTAGO OVATA SEED COAT [Concomitant]
     Active Substance: HERBALS\PLANTAGO OVATA SEED COAT

REACTIONS (4)
  - Myositis [Fatal]
  - Aspiration [Fatal]
  - Dysphagia [Fatal]
  - Pneumonia [Fatal]

NARRATIVE: CASE EVENT DATE: 20251023
